FAERS Safety Report 16709303 (Version 3)
Quarter: 2019Q3

REPORT INFORMATION
  Report Type: Report from Study
  Country: US (occurrence: US)
  Receive Date: 20190816
  Receipt Date: 20190920
  Transmission Date: 20191004
  Serious: Yes (Hospitalization)
  Sender: FDA-Public Use
  Company Number: US-ROCHE-2370093

PATIENT
  Age: 58 Year
  Sex: Female
  Weight: 61.2 kg

DRUGS (8)
  1. LEVOTHYROXINE. [Concomitant]
     Active Substance: LEVOTHYROXINE
  2. CABOZANTINIB [Suspect]
     Active Substance: CABOZANTINIB
     Indication: OVARIAN CANCER
     Dosage: DATE OF MOST RECENT DOSE: 21/JUL/2019
     Route: 048
     Dates: start: 20190412
  3. POTASSIUM CHLORIDE. [Concomitant]
     Active Substance: POTASSIUM CHLORIDE
  4. LACTULOSE. [Concomitant]
     Active Substance: LACTULOSE
  5. ATIVAN [Concomitant]
     Active Substance: LORAZEPAM
  6. ATEZOLIZUMAB. [Suspect]
     Active Substance: ATEZOLIZUMAB
     Indication: OVARIAN CANCER
     Dosage: DATE OF MOST RECENT DOSE: 24/JUN/2019
     Route: 042
     Dates: start: 20190412
  7. PROCHLORPERAZINE. [Concomitant]
     Active Substance: PROCHLORPERAZINE
  8. DEXAMETHASONE. [Concomitant]
     Active Substance: DEXAMETHASONE

REACTIONS (3)
  - Nausea [Recovered/Resolved with Sequelae]
  - Hyponatraemia [Recovered/Resolved with Sequelae]
  - Fatigue [Recovered/Resolved with Sequelae]

NARRATIVE: CASE EVENT DATE: 20190722
